FAERS Safety Report 18918812 (Version 2)
Quarter: 2021Q1

REPORT INFORMATION
  Report Type: Spontaneous
  Country: US (occurrence: US)
  Receive Date: 20210220
  Receipt Date: 20210303
  Transmission Date: 20210420
  Serious: Yes (Hospitalization, Other)
  Sender: FDA-Public Use
  Company Number: US-TAKEDA-2021TUS008628

PATIENT
  Sex: Male
  Weight: 72.56 kg

DRUGS (12)
  1. GAMMAGARD LIQUID [Suspect]
     Active Substance: HUMAN IMMUNOGLOBULIN G
     Indication: CHRONIC INFLAMMATORY DEMYELINATING POLYRADICULONEUROPATHY
     Dosage: 200 MILLIGRAM/KILOGRAM,DIVIDE 3D EVERY 4 WEEKS
     Route: 042
     Dates: start: 20180530
  2. HEPARIN [Concomitant]
     Active Substance: HEPARIN SODIUM
  3. IBUPROFEN. [Concomitant]
     Active Substance: IBUPROFEN
  4. DRISDOL [Concomitant]
     Active Substance: ERGOCALCIFEROL
  5. SODIUM CHLORIDE. [Concomitant]
     Active Substance: SODIUM CHLORIDE
  6. OXYGEN. [Concomitant]
     Active Substance: OXYGEN
  7. SINGULAIR [Concomitant]
     Active Substance: MONTELUKAST SODIUM
  8. EPINEPHRINE. [Concomitant]
     Active Substance: EPINEPHRINE
  9. VIMPAT [Concomitant]
     Active Substance: LACOSAMIDE
  10. FURADANTIN [Concomitant]
     Active Substance: NITROFURANTOIN
  11. ACETAMINOPHEN. [Concomitant]
     Active Substance: ACETAMINOPHEN
  12. KEPPRA [Concomitant]
     Active Substance: LEVETIRACETAM

REACTIONS (4)
  - Aspiration [Unknown]
  - Pneumonia [Unknown]
  - Product use in unapproved indication [Unknown]
  - Vomiting [Unknown]
